FAERS Safety Report 10469218 (Version 1)
Quarter: 2014Q3

REPORT INFORMATION
  Report Type: Report from Study
  Country: CA (occurrence: CA)
  Receive Date: 20140923
  Receipt Date: 20140923
  Transmission Date: 20150326
  Serious: Yes (Hospitalization)
  Sender: FDA-Public Use
  Company Number: CA-009507513-1409CAN010024

PATIENT
  Age: 67 Year
  Sex: Female

DRUGS (22)
  1. HYDROXYZINE [Concomitant]
     Active Substance: HYDROXYZINE\HYDROXYZINE HYDROCHLORIDE
  2. EZETROL [Suspect]
     Active Substance: EZETIMIBE
     Dosage: 10 MG, QD
     Route: 065
  3. FOLIC ACID. [Concomitant]
     Active Substance: FOLIC ACID
  4. VITAMIN B COMPLEX [Concomitant]
     Active Substance: CYANOCOBALAMIN\DEXPANTHENOL\NIACINAMIDE\PYRIDOXINE HYDROCHLORIDE\RIBOFLAVIN 5^-PHOSPHATE SODIUM\THIAMINE HYDROCHLORIDE\VITAMIN B COMPLEX
  5. VITAMIN D [Concomitant]
     Active Substance: CHOLECALCIFEROL
  6. ADVAIR HFA [Concomitant]
     Active Substance: FLUTICASONE PROPIONATE\SALMETEROL XINAFOATE
  7. ASPIRIN. [Concomitant]
     Active Substance: ASPIRIN
  8. CRANBERRY. [Concomitant]
     Active Substance: CRANBERRY
  9. ALBUTEROL. [Concomitant]
     Active Substance: ALBUTEROL
  10. DILTIAZEM HYDROCHLORIDE. [Concomitant]
     Active Substance: DILTIAZEM HYDROCHLORIDE
  11. GLICLAZIDE [Concomitant]
     Active Substance: GLICLAZIDE
  12. LANSOPRAZOLE. [Concomitant]
     Active Substance: LANSOPRAZOLE
  13. METFORMIN [Concomitant]
     Active Substance: METFORMIN HYDROCHLORIDE
  14. TASIGNA [Suspect]
     Active Substance: NILOTINIB
     Dosage: 400 MG, BID, THERAPY DURATTION: 3 DAYS
     Route: 048
  15. ACETAMINOPHEN. [Concomitant]
     Active Substance: ACETAMINOPHEN
  16. CLONAZEPAM. [Concomitant]
     Active Substance: CLONAZEPAM
  17. CHONDROITIN SULFATE SODIUM (+) GLUCOSAMINE SULFATE [Concomitant]
  18. OXYCODONE [Concomitant]
     Active Substance: OXYCODONE
  19. TELMISARTAN. [Concomitant]
     Active Substance: TELMISARTAN
  20. GRAPE SEEDS [Concomitant]
  21. OMEGA-3 ACIDS [Concomitant]
     Active Substance: OMEGA-3 FATTY ACIDS
  22. MAGNESIUM (UNSPECIFIED) [Concomitant]
     Active Substance: MAGNESIUM

REACTIONS (9)
  - Sleep apnoea syndrome [Unknown]
  - Blood bilirubin increased [Unknown]
  - Vomiting [Unknown]
  - Blood alkaline phosphatase increased [Unknown]
  - Alanine aminotransferase increased [Unknown]
  - Pancreatitis [Unknown]
  - Hypokalaemia [Unknown]
  - Lipase increased [Unknown]
  - Abdominal pain upper [Unknown]
